FAERS Safety Report 5536418-3 (Version None)
Quarter: 2007Q4

REPORT INFORMATION
  Report Type: 
  Country: None (occurrence: None)
  Receive Date: 20071204
  Receipt Date: 20071126
  Transmission Date: 20080405
  Serious: Yes (Death, Life-Threatening, Hospitalization, Other)
  Sender: FDA-Public Use
  Company Number: 07112328

PATIENT
  Age: 65 Year
  Sex: Male

DRUGS (1)
  1. AMIODARONE [Suspect]
     Indication: ATRIAL FIBRILLATION
     Dosage: ORAL
     Route: 048

REACTIONS (5)
  - CARDIOPULMONARY FAILURE [None]
  - HYPERTHYROIDISM [None]
  - MULTI-ORGAN FAILURE [None]
  - PULMONARY FIBROSIS [None]
  - PYREXIA [None]
